FAERS Safety Report 10313681 (Version 1)
Quarter: 2014Q3

REPORT INFORMATION
  Report Type: Spontaneous
  Country: US (occurrence: None)
  Receive Date: 20140716
  Receipt Date: 20140716
  Transmission Date: 20150326
  Serious: Yes (Other)
  Sender: FDA-Public Use
  Company Number: 2014US00733

PATIENT

DRUGS (1)
  1. TOPIRAMATE (TOPIRAMATE) TABLET [Suspect]
     Active Substance: TOPIRAMATE
     Indication: DRUG DEPENDENCE

REACTIONS (2)
  - Accidental poisoning [None]
  - Carbon monoxide poisoning [None]
